FAERS Safety Report 12844239 (Version 1)
Quarter: 2016Q4

REPORT INFORMATION
  Report Type: Spontaneous
  Country: US (occurrence: US)
  Receive Date: 20161012
  Receipt Date: 20161012
  Transmission Date: 20170207
  Serious: Yes (Life-Threatening, Hospitalization)
  Sender: FDA-Public Use
  Company Number: None

PATIENT
  Age: 73 Year
  Sex: Male
  Weight: 75.3 kg

DRUGS (1)
  1. INFLIXIMAB [Suspect]
     Active Substance: INFLIXIMAB
     Indication: CROHN^S DISEASE
     Dosage: INTRAVENOUS DRIP EVERY 8 WEEKS?
     Route: 041
     Dates: start: 20160502, end: 20160817

REACTIONS (5)
  - Anaphylactic reaction [None]
  - Dyspnoea [None]
  - Ventricular tachycardia [None]
  - Chest pain [None]
  - Hypotension [None]

NARRATIVE: CASE EVENT DATE: 20160817
